FAERS Safety Report 8602529-9 (Version None)
Quarter: 2012Q3

REPORT INFORMATION
  Report Type: 
  Country: None (occurrence: None)
  Receive Date: 20120817
  Receipt Date: 19910622
  Transmission Date: 20120928
  Serious: Yes (Hospitalization)
  Sender: FDA-Public Use
  Company Number: US-ROCHE-1101449

PATIENT
  Age: 55 Year
  Sex: Male

DRUGS (3)
  1. ACTIVASE [Suspect]
     Indication: ACUTE MYOCARDIAL INFARCTION
     Route: 042
     Dates: start: 19910713
  2. ACTIVASE [Suspect]
     Route: 042
     Dates: start: 19910713
  3. ACTIVASE [Suspect]
     Route: 040
     Dates: start: 19910712

REACTIONS (4)
  - DYSPNOEA [None]
  - VOMITING [None]
  - VENTRICULAR TACHYCARDIA [None]
  - URINARY RETENTION [None]
